FAERS Safety Report 19185248 (Version 1)
Quarter: 2021Q2

REPORT INFORMATION
  Report Type: Spontaneous
  Country: US (occurrence: US)
  Receive Date: 20210427
  Receipt Date: 20210427
  Transmission Date: 20210717
  Serious: No
  Sender: FDA-Public Use
  Company Number: None

PATIENT
  Age: 62 Year
  Sex: Female
  Weight: 48.6 kg

DRUGS (18)
  1. KLOR?CON M10 [Concomitant]
     Active Substance: POTASSIUM CHLORIDE
  2. ONDANSETRON HCL [Concomitant]
     Active Substance: ONDANSETRON HYDROCHLORIDE
  3. STOOL SOFTENER (DOCUSATE) [Concomitant]
     Active Substance: DOCUSATE
  4. VITAMIN B12 [Concomitant]
     Active Substance: CYANOCOBALAMIN
  5. CAPECITABINE. [Suspect]
     Active Substance: CAPECITABINE
     Indication: BREAST CANCER FEMALE
     Route: 048
     Dates: start: 20210111, end: 20210427
  6. CEPHALEXIN. [Concomitant]
     Active Substance: CEPHALEXIN
  7. XANAX [Concomitant]
     Active Substance: ALPRAZOLAM
  8. ZALEPLON. [Concomitant]
     Active Substance: ZALEPLON
  9. MECLIZINE HCL [Concomitant]
     Active Substance: MECLIZINE HYDROCHLORIDE
  10. CLONIDINE. [Concomitant]
     Active Substance: CLONIDINE
  11. GABAPENTIN. [Concomitant]
     Active Substance: GABAPENTIN
  12. TYLENOL PM EXTRA STRENGTH [Concomitant]
     Active Substance: ACETAMINOPHEN\DIPHENHYDRAMINE HYDROCHLORIDE
  13. IMODIUM A?D [Concomitant]
     Active Substance: LOPERAMIDE HYDROCHLORIDE
  14. LEXAPRO [Concomitant]
     Active Substance: ESCITALOPRAM OXALATE
  15. HERCEPTIN [Concomitant]
     Active Substance: TRASTUZUMAB
  16. MARINOL [Concomitant]
     Active Substance: DRONABINOL
  17. NORCO [Concomitant]
     Active Substance: ACETAMINOPHEN\HYDROCODONE BITARTRATE
  18. OMEPRAZOLE. [Concomitant]
     Active Substance: OMEPRAZOLE

REACTIONS (1)
  - Disease progression [None]

NARRATIVE: CASE EVENT DATE: 20210427
